FAERS Safety Report 4559192-6 (Version None)
Quarter: 2005Q1

REPORT INFORMATION
  Report Type: 
  Country: None (occurrence: None)
  Receive Date: 20050121
  Receipt Date: 20050121
  Transmission Date: 20050727
  Serious: No
  Sender: FDA-Public Use
  Company Number: None

PATIENT
  Age: 9 Year
  Sex: Female
  Weight: 28.123 kg

DRUGS (1)
  1. STRATTERA [Suspect]
     Indication: ATTENTION DEFICIT/HYPERACTIVITY DISORDER
     Dosage: PILL    40MGS   ORAL
     Route: 048
     Dates: start: 20041020, end: 20050105

REACTIONS (3)
  - BLOOD DISORDER [None]
  - COAGULATION TIME PROLONGED [None]
  - CONTUSION [None]
